FAERS Safety Report 9695991 (Version 2)
Quarter: 2013Q4

REPORT INFORMATION
  Report Type: Report from Study
  Country: GB (occurrence: GB)
  Receive Date: 20131119
  Receipt Date: 20131202
  Transmission Date: 20140711
  Serious: Yes (Hospitalization)
  Sender: FDA-Public Use
  Company Number: GB-B.I. PHARMACEUTICALS,INC./RIDGEFIELD-2013-BI-37496BI

PATIENT
  Age: 81 Year
  Sex: Female
  Weight: 59 kg

DRUGS (1)
  1. PRADAXA [Suspect]

REACTIONS (1)
  - Syncope [Recovered/Resolved]
